FAERS Safety Report 5069191-6 (Version None)
Quarter: 2006Q3

REPORT INFORMATION
  Report Type: 
  Country: None (occurrence: None)
  Receive Date: 20060803
  Receipt Date: 20060526
  Transmission Date: 20061208
  Serious: Yes (Other)
  Sender: FDA-Public Use
  Company Number: US-JNJFOC-20060506064

PATIENT
  Sex: Male
  Weight: 40.14 kg

DRUGS (1)
  1. REMICADE [Suspect]
     Indication: CROHN'S DISEASE
     Dosage: INFLIXIMAB THERAPY INITIATED 1 1/2 TO 2 YEARS AGO
     Route: 042

REACTIONS (1)
  - OSTEOMYELITIS [None]
